FAERS Safety Report 9663954 (Version 1)
Quarter: 2013Q4

REPORT INFORMATION
  Report Type: Spontaneous
  Country: US (occurrence: US)
  Receive Date: 20131101
  Receipt Date: 20131101
  Transmission Date: 20140711
  Serious: Yes (Hospitalization, Other)
  Sender: FDA-Public Use
  Company Number: US-PFIZER INC-2013311529

PATIENT
  Age: 66 Year
  Sex: Male

DRUGS (2)
  1. NEURONTIN [Suspect]
     Indication: NEURALGIA
     Dosage: 900 MG, 3X/DAY
     Dates: start: 2012, end: 20131028
  2. DILAUDID [Concomitant]
     Indication: ANALGESIC THERAPY
     Dosage: UNK

REACTIONS (1)
  - Neoplasm malignant [Unknown]
